FAERS Safety Report 18453101 (Version 1)
Quarter: 2020Q4

REPORT INFORMATION
  Report Type: Spontaneous
  Country: TR (occurrence: TR)
  Receive Date: 20201102
  Receipt Date: 20201102
  Transmission Date: 20210114
  Serious: Yes (Other)
  Sender: FDA-Public Use
  Company Number: TR-LUPIN PHARMACEUTICALS INC.-2020-05915

PATIENT
  Age: 9 Year
  Sex: Male

DRUGS (4)
  1. PONATINIB [Concomitant]
     Active Substance: PONATINIB
     Dosage: 13 MILLIGRAM/SQ. METER QD
     Route: 065
  2. IMATINIB MESYLATE. [Suspect]
     Active Substance: IMATINIB MESYLATE
     Indication: CHRONIC MYELOID LEUKAEMIA
     Dosage: 300 MILLIGRAM/SQ. METER, QD
     Route: 065
  3. PONATINIB [Concomitant]
     Active Substance: PONATINIB
     Indication: ACUTE LYMPHOCYTIC LEUKAEMIA
     Dosage: 15 MILLIGRAM QD
     Route: 065
  4. DASATINIB. [Concomitant]
     Active Substance: DASATINIB
     Indication: PRODUCT USED FOR UNKNOWN INDICATION
     Dosage: 60 MILLIGRAM/SQ. METER, QD
     Route: 065

REACTIONS (2)
  - Neutropenia [Unknown]
  - Bone pain [Unknown]
